FAERS Safety Report 7806836-9 (Version None)
Quarter: 2011Q4

REPORT INFORMATION
  Report Type: 
  Country: None (occurrence: None)
  Receive Date: 20111011
  Receipt Date: 20110929
  Transmission Date: 20120403
  Serious: Yes (Hospitalization)
  Sender: FDA-Public Use
  Company Number: DE-ELI_LILLY_AND_COMPANY-DE201108004429

PATIENT
  Sex: Female
  Weight: 66 kg

DRUGS (15)
  1. ASPIRIN [Concomitant]
     Dosage: UNK
     Dates: start: 20080101
  2. L-THYROX [Concomitant]
     Indication: THYROIDECTOMY
     Dosage: UNK
     Dates: start: 19930101
  3. ALENDRON [Concomitant]
     Indication: OSTEOPOROSIS
     Dosage: UNK
     Dates: start: 20101001
  4. OMEPRAZOLE [Concomitant]
     Indication: PROPHYLAXIS
     Dosage: UNK
     Dates: start: 20110512
  5. PEMETREXED [Suspect]
     Dosage: 785 MG, D7
     Route: 042
     Dates: start: 20110809, end: 20110826
  6. VITAMIN B-12 [Concomitant]
     Indication: PROPHYLAXIS
     Dosage: UNK
     Dates: start: 20110413
  7. PEMETREXED [Suspect]
     Indication: NON-SMALL CELL LUNG CANCER
     Dosage: 830 MG, UNK
     Route: 042
     Dates: start: 20110502, end: 20110719
  8. TEPILTA [Concomitant]
     Indication: DYSPHAGIA
     Dosage: UNK
     Dates: start: 20110518
  9. FOLIC ACID [Concomitant]
     Indication: PROPHYLAXIS
     Dosage: UNK
     Dates: start: 20110413
  10. INSULIN [Concomitant]
     Indication: DIABETES MELLITUS
     Dosage: UNK
     Dates: start: 19980101
  11. NOVALGIN [Concomitant]
     Indication: PAIN
     Dosage: UNK
     Dates: start: 20110509
  12. PARACODEINE [Concomitant]
     Indication: COUGH
     Dosage: UNK
     Dates: start: 20110516
  13. DEXAMETHASONE [Concomitant]
     Indication: PROPHYLAXIS
     Dosage: UNK
     Dates: start: 20110501
  14. RADIATION [Suspect]
     Indication: NON-SMALL CELL LUNG CANCER
     Dosage: UNK
     Dates: start: 20110502, end: 20110620
  15. LOSARTAN POTASSIUM [Concomitant]
     Indication: HYPERTENSION
     Dosage: UNK
     Dates: start: 20110101

REACTIONS (1)
  - OESOPHAGITIS [None]
